FAERS Safety Report 25529098 (Version 2)
Quarter: 2025Q3

REPORT INFORMATION
  Report Type: Spontaneous
  Country: KR (occurrence: KR)
  Receive Date: 20250708
  Receipt Date: 20250815
  Transmission Date: 20251020
  Serious: Yes (Other)
  Sender: NOVARTIS
  Company Number: KR-002147023-NVSC2025KR107227

PATIENT
  Age: 16 Year
  Sex: Female

DRUGS (3)
  1. TRILEPTAL [Suspect]
     Active Substance: OXCARBAZEPINE
     Indication: Epilepsy
     Dosage: 960 MG, QD (DIVIDED INTO TWO DOSES)
     Route: 048
     Dates: start: 20180427
  2. KEPPRA [Concomitant]
     Active Substance: LEVETIRACETAM
     Indication: Epilepsy
     Dosage: 6 DOSAGE FORM, BID (CC)
     Route: 065
     Dates: start: 2018
  3. KEPPRA [Concomitant]
     Active Substance: LEVETIRACETAM
     Dosage: 8 DOSAGE FORM, BID (CC)
     Route: 065

REACTIONS (1)
  - Tonic convulsion [Unknown]

NARRATIVE: CASE EVENT DATE: 20211101
